FAERS Safety Report 5945584-7 (Version None)
Quarter: 2008Q4

REPORT INFORMATION
  Report Type: 
  Country: None (occurrence: None)
  Receive Date: 20081107
  Receipt Date: 20081027
  Transmission Date: 20090506
  Serious: Yes (Other)
  Sender: FDA-Public Use
  Company Number: US-PFIZER INC-2008091071

PATIENT
  Sex: Female
  Weight: 54.545 kg

DRUGS (8)
  1. DILANTIN [Suspect]
     Indication: MIGRAINE
     Dates: start: 19800101
  2. CARDIAC THERAPY [Concomitant]
  3. NITROGLYCERIN [Concomitant]
  4. PREMARIN [Concomitant]
  5. NEXIUM [Concomitant]
  6. MULTI-VITAMINS [Concomitant]
  7. VITAMIN B6 [Concomitant]
  8. VITAMIN B-12 [Concomitant]

REACTIONS (8)
  - ANTICONVULSANT DRUG LEVEL DECREASED [None]
  - BALANCE DISORDER [None]
  - CATARACT OPERATION [None]
  - DRY MOUTH [None]
  - DYSURIA [None]
  - HEADACHE [None]
  - TINNITUS [None]
  - VISION BLURRED [None]
